FAERS Safety Report 13013581 (Version 1)
Quarter: 2016Q4

REPORT INFORMATION
  Report Type: Report from Study
  Country: US (occurrence: US)
  Receive Date: 20161209
  Receipt Date: 20161209
  Transmission Date: 20170207
  Serious: Yes (Death)
  Sender: FDA-Public Use
  Company Number: US-SAOL THERAPEUTICS-2016SAO00893

PATIENT
  Age: 54 Year
  Sex: Male

DRUGS (20)
  1. COMPOUNDED BACLOFEN [Suspect]
     Active Substance: BACLOFEN
     Indication: PAIN
     Dosage: 160.21 ?G, \DAY
     Route: 037
     Dates: start: 20151210, end: 20160108
  2. BUPIVACAINE. [Suspect]
     Active Substance: BUPIVACAINE
     Dosage: 18.905 MG, \DAY
     Route: 037
     Dates: start: 20160315
  3. LIDODERM [Suspect]
     Active Substance: LIDOCAINE
     Dosage: UNK
     Route: 037
  4. DILAUDID [Suspect]
     Active Substance: HYDROMORPHONE HYDROCHLORIDE
     Dosage: 1.0002 MG, \DAY
     Route: 037
     Dates: start: 20160108
  5. DILAUDID [Suspect]
     Active Substance: HYDROMORPHONE HYDROCHLORIDE
     Dosage: 2.258 MG, \DAY
     Dates: start: 20160315
  6. DILAUDID [Suspect]
     Active Substance: HYDROMORPHONE HYDROCHLORIDE
     Dosage: UNK
  7. BUPIVACAINE. [Suspect]
     Active Substance: BUPIVACAINE
     Dosage: 33.871 MG, \DAY
     Route: 037
     Dates: start: 20160315
  8. DILAUDID [Suspect]
     Active Substance: HYDROMORPHONE HYDROCHLORIDE
     Dosage: 1.26 MG, \DAY
     Route: 037
     Dates: start: 20160315
  9. BUPIVACAINE. [Suspect]
     Active Substance: BUPIVACAINE
     Dosage: 12.016 MG, \DAY
     Route: 037
     Dates: start: 20151210, end: 20160108
  10. COMPOUNDED BACLOFEN [Suspect]
     Active Substance: BACLOFEN
     Indication: PAIN
     Dosage: 189.05 ?G, \DAY
     Route: 037
     Dates: start: 20160315
  11. COMPOUNDED BACLOFEN [Suspect]
     Active Substance: BACLOFEN
     Dosage: 225.81 ?G, \DAY
     Route: 037
     Dates: start: 20160418
  12. DILAUDID [Suspect]
     Active Substance: HYDROMORPHONE HYDROCHLORIDE
     Dosage: 0.7002 MG, \DAY
     Route: 037
     Dates: end: 20151210
  13. BUPIVACAINE. [Suspect]
     Active Substance: BUPIVACAINE
     Dosage: 15.004 MG, \DAY
     Route: 037
     Dates: start: 20160108
  14. COMPOUNDED BACLOFEN [Suspect]
     Active Substance: BACLOFEN
     Dosage: 140.03 ?G, \DAY
     Route: 037
     Dates: end: 20151210
  15. BUPIVACAINE. [Suspect]
     Active Substance: BUPIVACAINE
     Dosage: 10.503 MG, \DAY
     Route: 037
     Dates: end: 20151210
  16. COMPOUNDED BACLOFEN [Suspect]
     Active Substance: BACLOFEN
     Dosage: 200.05 ?G, \DAY
     Route: 037
     Dates: start: 20160108
  17. COMPOUNDED BACLOFEN [Suspect]
     Active Substance: BACLOFEN
     Indication: PAIN
     Dosage: 126.03 ?G, \DAY
     Route: 037
     Dates: start: 20160418
  18. DILAUDID [Suspect]
     Active Substance: HYDROMORPHONE HYDROCHLORIDE
     Dosage: 0.801 MG, \DAY
     Route: 037
     Dates: start: 20151210, end: 20160108
  19. BUPIVACAINE. [Suspect]
     Active Substance: BUPIVACAINE
     Dosage: UNK
  20. COMPOUNDED BACLOFEN [Suspect]
     Active Substance: BACLOFEN
     Dosage: 338.71 ?G, \DAY
     Route: 037
     Dates: start: 20160315

REACTIONS (5)
  - Hyperhidrosis [Recovered/Resolved]
  - Implant site pain [Not Recovered/Not Resolved]
  - Off label use [Unknown]
  - Prostate cancer [Fatal]
  - Sedation [Recovered/Resolved]

NARRATIVE: CASE EVENT DATE: 20151210
